FAERS Safety Report 7076548-0 (Version None)
Quarter: 2010Q4

REPORT INFORMATION
  Report Type: 
  Country: None (occurrence: None)
  Receive Date: 20101101
  Receipt Date: 20101019
  Transmission Date: 20110411
  Serious: Yes (Life-Threatening, Other)
  Sender: FDA-Public Use
  Company Number: NL-PFIZER INC-2010076938

PATIENT
  Age: 62 Year
  Sex: Female
  Weight: 87 kg

DRUGS (9)
  1. CHAMPIX [Suspect]
     Indication: SMOKING CESSATION THERAPY
     Dosage: 1 MG, 1X/DAY
     Dates: start: 20100605, end: 20100613
  2. CHAMPIX [Suspect]
     Dosage: 1 MG, 2X/DAY
     Dates: start: 20100613, end: 20100618
  3. ZOLOFT [Concomitant]
     Indication: ANTIDEPRESSANT THERAPY
     Dosage: 50 MG, 1X/DAY
     Route: 048
     Dates: start: 20080101
  4. CODEINE PHOSPHATE AND ACETAMINOPHEN [Concomitant]
     Indication: PAIN
     Dosage: 500/20 ORALLY PRO RE NATA
     Route: 048
     Dates: start: 20000101
  5. ZOLPIDEM TARTRATE [Concomitant]
     Indication: INSOMNIA
     Dosage: 10 MG, 1X/DAY
     Route: 048
     Dates: start: 20070101
  6. OXAZEPAM [Concomitant]
     Indication: ANXIETY
     Dosage: 10 MG, AS NEEDED
     Route: 048
     Dates: start: 20080101
  7. VENTOLIN [Concomitant]
     Indication: INFECTION
     Dosage: UNK
  8. EPIPEN [Concomitant]
     Indication: ANAPHYLACTIC SHOCK
     Dosage: UNK
  9. AERIUS [Concomitant]
     Dosage: 5 MG, UNK

REACTIONS (15)
  - ANGER [None]
  - ANXIETY [None]
  - DISTURBANCE IN ATTENTION [None]
  - DOPAMINE DYSREGULATION SYNDROME [None]
  - EMOTIONAL DISORDER [None]
  - FEAR [None]
  - FEELING JITTERY [None]
  - GAIT DISTURBANCE [None]
  - IRRITABLE BOWEL SYNDROME [None]
  - NAUSEA [None]
  - NIGHTMARE [None]
  - PAIN [None]
  - SUICIDAL IDEATION [None]
  - SUICIDE ATTEMPT [None]
  - VISUAL FIELD DEFECT [None]
